FAERS Safety Report 6917252-6 (Version None)
Quarter: 2010Q3

REPORT INFORMATION
  Report Type: 
  Country: None (occurrence: None)
  Receive Date: 20100805
  Receipt Date: 20100729
  Transmission Date: 20110219
  Serious: Yes (Hospitalization)
  Sender: FDA-Public Use
  Company Number: AMAG201000262

PATIENT
  Age: 86 Year
  Sex: Male
  Weight: 72.6 kg

DRUGS (8)
  1. FERAHEME [Suspect]
     Indication: IRON DEFICIENCY ANAEMIA
     Dosage: 510 MG, SINGLE, INTRAVENOUS; 255 MG, SINGLE, INTRAVENOUS
     Route: 042
     Dates: start: 20100604, end: 20100604
  2. FERAHEME [Suspect]
     Indication: NEPHROGENIC ANAEMIA
     Dosage: 510 MG, SINGLE, INTRAVENOUS; 255 MG, SINGLE, INTRAVENOUS
     Route: 042
     Dates: start: 20100604, end: 20100604
  3. FERAHEME [Suspect]
     Indication: IRON DEFICIENCY ANAEMIA
     Dosage: 510 MG, SINGLE, INTRAVENOUS; 255 MG, SINGLE, INTRAVENOUS
     Route: 042
     Dates: start: 20100610, end: 20100610
  4. FERAHEME [Suspect]
     Indication: NEPHROGENIC ANAEMIA
     Dosage: 510 MG, SINGLE, INTRAVENOUS; 255 MG, SINGLE, INTRAVENOUS
     Route: 042
     Dates: start: 20100610, end: 20100610
  5. COUMADIN SODIUM (WARFARIN SODIUM) [Concomitant]
  6. NORVASC [Concomitant]
  7. COREG [Concomitant]
  8. LIPITOR [Concomitant]

REACTIONS (8)
  - ANAPHYLACTIC REACTION [None]
  - APNOEA [None]
  - ARRHYTHMIA [None]
  - ASTHENIA [None]
  - ATRIAL FIBRILLATION [None]
  - BRADYCARDIA [None]
  - PULSE ABSENT [None]
  - SYNCOPE [None]
